FAERS Safety Report 15118916 (Version 2)
Quarter: 2018Q3

REPORT INFORMATION
  Report Type: Spontaneous
  Country: US (occurrence: US)
  Receive Date: 20180709
  Receipt Date: 20180911
  Transmission Date: 20181010
  Serious: Yes (Other)
  Sender: FDA-Public Use
  Company Number: US-CONCORDIA PHARMACEUTICALS INC.-E2B_00011205

PATIENT
  Age: 12 Year
  Sex: Male

DRUGS (5)
  1. PIMECROLIMUS [Concomitant]
     Active Substance: PIMECROLIMUS
     Indication: DERMATITIS ATOPIC
  2. TRIAMCINOLONE 0.1% [Concomitant]
     Active Substance: TRIAMCINOLONE
     Indication: DERMATITIS ATOPIC
  3. PREDNISOLONE. [Suspect]
     Active Substance: PREDNISOLONE
     Indication: DERMATITIS ATOPIC
     Dosage: ORAL SOLUTION OF PREDNISOLONE 15 MG/5 ML, EQUIVALENT TO 70 MG/M^2/D OF ORAL PREDNISONE.
     Route: 048
  4. MOMETASONE 0.1% [Concomitant]
     Indication: DERMATITIS ATOPIC
  5. PETROLEUM JELLY [Concomitant]
     Active Substance: PETROLATUM
     Indication: DERMATITIS ATOPIC

REACTIONS (5)
  - Self-medication [Unknown]
  - Hepatotoxicity [Unknown]
  - Cushing^s syndrome [Unknown]
  - Insulin resistance [Unknown]
  - Adrenal suppression [Unknown]
